FAERS Safety Report 6565884-X (Version None)
Quarter: 2010Q1

REPORT INFORMATION
  Report Type: 
  Country: None (occurrence: None)
  Receive Date: 20100127
  Receipt Date: 20100121
  Transmission Date: 20100710
  Serious: Yes (Life-Threatening, Hospitalization)
  Sender: FDA-Public Use
  Company Number: THQ2010A00058

PATIENT
  Age: 85 Year
  Sex: Male

DRUGS (2)
  1. ROZEREM [Suspect]
     Indication: INSOMNIA
     Dosage: (1 IN 1 D), NASOGASTRIC TUBE
     Dates: start: 20091227, end: 20091229
  2. ALPRAZOLAM [Concomitant]

REACTIONS (1)
  - HYPERCAPNIA [None]
